FAERS Safety Report 7074014-X (Version None)
Quarter: 2010Q4

REPORT INFORMATION
  Report Type: 
  Country: None (occurrence: None)
  Receive Date: 20101029
  Receipt Date: 20101020
  Transmission Date: 20110411
  Serious: Yes (Other)
  Sender: FDA-Public Use
  Company Number: DE-ABBOTT-10P-062-0680055-00

PATIENT
  Age: 47 Year
  Sex: Female
  Weight: 93 kg

DRUGS (4)
  1. ZEMPLAR [Suspect]
     Indication: HYPERPARATHYROIDISM SECONDARY
     Route: 042
     Dates: start: 20100120, end: 20100209
  2. ZEMPLAR [Suspect]
     Route: 042
     Dates: start: 20100210, end: 20100611
  3. FUROSEMID [Concomitant]
     Indication: PRODUCT USED FOR UNKNOWN INDICATION
     Route: 048
     Dates: start: 20100106, end: 20100421
  4. FUROSEMID [Concomitant]
     Dosage: DAILY
     Route: 048
     Dates: start: 20100421

REACTIONS (2)
  - CERVICOBRACHIAL SYNDROME [None]
  - NEPHROTIC SYNDROME [None]
